FAERS Safety Report 9377533 (Version 1)
Quarter: 2013Q3

REPORT INFORMATION
  Report Type: Report from Study
  Country: US (occurrence: US)
  Receive Date: 20130701
  Receipt Date: 20130701
  Transmission Date: 20140515
  Serious: Yes (Hospitalization)
  Sender: FDA-Public Use
  Company Number: US-ACTELION-A-US2012-76306

PATIENT
  Age: 42 Year
  Sex: Female

DRUGS (2)
  1. VELETRI [Suspect]
     Indication: PULMONARY ARTERIAL HYPERTENSION
     Dosage: 28 NG/KG, PER MIN
     Route: 042
     Dates: start: 20110901
  2. SILDENAFIL [Concomitant]

REACTIONS (3)
  - Infection [Unknown]
  - Device related infection [Unknown]
  - Culture negative [Unknown]
